FAERS Safety Report 18456640 (Version 2)
Quarter: 2020Q4

REPORT INFORMATION
  Report Type: Spontaneous
  Country: US (occurrence: US)
  Receive Date: 20201103
  Receipt Date: 20201209
  Transmission Date: 20210114
  Serious: Yes (Other)
  Sender: FDA-Public Use
  Company Number: US-SUNOVION-2020SUN003215

PATIENT
  Age: 68 Year
  Sex: Female

DRUGS (5)
  1. KYNMOBI [Suspect]
     Active Substance: APOMORPHINE HYDROCHLORIDE
     Indication: PARKINSON^S DISEASE
     Dosage: CUT THE 20MG FILM IN HALF
     Route: 060
     Dates: start: 20201027
  2. KYNMOBI [Suspect]
     Active Substance: APOMORPHINE HYDROCHLORIDE
     Dosage: 20 MG
     Route: 060
  3. TIGAN [Concomitant]
     Active Substance: TRIMETHOBENZAMIDE HYDROCHLORIDE
     Indication: NAUSEA
     Dosage: UNK
  4. STALEVO [Concomitant]
     Active Substance: CARBIDOPA\ENTACAPONE\LEVODOPA
     Indication: PARKINSON^S DISEASE
     Dosage: 150 MG, Q3 HOURS X 5 DOSES
  5. KYNMOBI [Suspect]
     Active Substance: APOMORPHINE HYDROCHLORIDE
     Dosage: 10 MG
     Route: 060
     Dates: start: 20201023

REACTIONS (20)
  - Dyskinesia [Unknown]
  - Pharyngeal swelling [Unknown]
  - Oral discomfort [Unknown]
  - Tongue discomfort [Unknown]
  - Nervousness [Unknown]
  - Weight decreased [Unknown]
  - Tongue thrust [Unknown]
  - Incorrect dose administered [Unknown]
  - Wrong technique in product usage process [Unknown]
  - Ataxia [Unknown]
  - Stomatitis [Unknown]
  - Choking sensation [Unknown]
  - Nausea [Unknown]
  - Feeling abnormal [Unknown]
  - Throat irritation [Unknown]
  - Throat tightness [Unknown]
  - Angular cheilitis [Unknown]
  - Hallucination [Unknown]
  - Dry mouth [Unknown]
  - Oropharyngeal pain [Unknown]

NARRATIVE: CASE EVENT DATE: 20201027
